FAERS Safety Report 17483865 (Version 1)
Quarter: 2020Q1

REPORT INFORMATION
  Report Type: Other
  Country: US (occurrence: US)
  Receive Date: 20200302
  Receipt Date: 20200302
  Transmission Date: 20200409
  Serious: No
  Sender: FDA-Public Use
  Company Number: US-AMAG PHARMACEUTICALS, INC.-AMAG202000518

PATIENT
  Sex: Female
  Weight: 78.54 kg

DRUGS (1)
  1. MAKENA [Suspect]
     Active Substance: HYDROXYPROGESTERONE CAPROATE
     Indication: PREMATURE DELIVERY
     Dosage: 250MG/ML, WEEKLY
     Route: 058

REACTIONS (6)
  - Rash pruritic [Unknown]
  - Injection site mass [Unknown]
  - Dizziness [Unknown]
  - Injection site swelling [Unknown]
  - Tremor [Unknown]
  - Injection site erythema [Unknown]
